FAERS Safety Report 7870975-7 (Version None)
Quarter: 2011Q4

REPORT INFORMATION
  Report Type: 
  Country: None (occurrence: None)
  Receive Date: 20111029
  Receipt Date: 20110222
  Transmission Date: 20120403
  Serious: Yes (Other)
  Sender: FDA-Public Use
  Company Number: US-AMGEN-USASP2011010239

PATIENT
  Age: 59 Year
  Sex: Female

DRUGS (2)
  1. ENBREL [Suspect]
     Indication: OFF LABEL USE
  2. ENBREL [Suspect]
     Indication: PSORIASIS
     Dates: start: 20101209

REACTIONS (3)
  - PARAESTHESIA [None]
  - PSORIASIS [None]
  - DRUG INEFFECTIVE [None]
